FAERS Safety Report 24629276 (Version 2)
Quarter: 2024Q4

REPORT INFORMATION
  Report Type: Spontaneous
  Country: NL (occurrence: NL)
  Receive Date: 20241118
  Receipt Date: 20241128
  Transmission Date: 20250115
  Serious: Yes (Other)
  Sender: TEVA
  Company Number: None

PATIENT
  Age: 39 Year
  Sex: Male
  Weight: 70 kg

DRUGS (1)
  1. BUPROPION [Suspect]
     Active Substance: BUPROPION
     Indication: Attention deficit hyperactivity disorder
     Dosage: 2D1TA, TABLET MGA / BRAND NAME NOT SPECIFIED
     Route: 048
     Dates: start: 20240530

REACTIONS (2)
  - Swollen tongue [Recovering/Resolving]
  - Salivary hypersecretion [Recovering/Resolving]
